FAERS Safety Report 4783134-1 (Version None)
Quarter: 2005Q3

REPORT INFORMATION
  Report Type: 
  Country: None (occurrence: None)
  Receive Date: 20050928
  Receipt Date: 20050928
  Transmission Date: 20060218
  Serious: Yes (Life-Threatening)
  Sender: FDA-Public Use
  Company Number: None

PATIENT
  Age: 68 Year
  Sex: Female

DRUGS (3)
  1. ZYVOX [Suspect]
     Indication: BILIARY TRACT DISORDER
     Dosage: 600 MG Q 12 HOURS
     Dates: start: 20050829, end: 20050909
  2. ZYVOX [Suspect]
     Indication: ENTEROCOCCAL INFECTION
     Dosage: 600 MG Q 12 HOURS
     Dates: start: 20050829, end: 20050909
  3. CASPOFUNGIN [Concomitant]

REACTIONS (2)
  - NEUTROPENIA [None]
  - WHITE BLOOD CELL COUNT DECREASED [None]
